FAERS Safety Report 10102434 (Version 2)
Quarter: 2014Q3

REPORT INFORMATION
  Report Type: Other
  Country: US (occurrence: US)
  Receive Date: 20140424
  Receipt Date: 20140709
  Transmission Date: 20150326
  Serious: Yes (Hospitalization, Other)
  Sender: FDA-Public Use
  Company Number: US-GSKPPD-2014GSK000298

PATIENT
  Age: 59 Year
  Sex: Female

DRUGS (8)
  1. IMDUR [Concomitant]
     Active Substance: ISOSORBIDE MONONITRATE
  2. AVANDAMET [Suspect]
     Active Substance: METFORMIN HYDROCHLORIDE\ROSIGLITAZONE MALEATE
     Indication: DIABETES MELLITUS
     Dosage: 1MG/500MG
     Dates: start: 20040214, end: 200404
  3. COREG [Concomitant]
     Active Substance: CARVEDILOL
  4. DILTIAZEM [Concomitant]
     Active Substance: DILTIAZEM
  5. AVANDIA [Suspect]
     Active Substance: ROSIGLITAZONE MALEATE
     Indication: DIABETES MELLITUS
     Dosage: AVANDIA WAS NOT LISTED AMONG THE PATIENTS DISCHARGE RECORDS.
     Route: 048
  6. LISINOPRIL. [Concomitant]
     Active Substance: LISINOPRIL
  7. DIGOXIN. [Concomitant]
     Active Substance: DIGOXIN
  8. FUROSEMIDE. [Concomitant]
     Active Substance: FUROSEMIDE

REACTIONS (1)
  - Cerebrovascular accident [Recovered/Resolved]

NARRATIVE: CASE EVENT DATE: 20040927
